FAERS Safety Report 24437266 (Version 5)
Quarter: 2024Q4

REPORT INFORMATION
  Report Type: Report from Study
  Country: FR (occurrence: FR)
  Receive Date: 20241015
  Receipt Date: 20241204
  Transmission Date: 20250115
  Serious: Yes (Hospitalization, Other)
  Sender: PFIZER
  Company Number: FR-PFM-2024-03357

PATIENT
  Age: 56 Year
  Sex: Male
  Weight: 86.5 kg

DRUGS (14)
  1. ENCORAFENIB [Suspect]
     Active Substance: ENCORAFENIB
     Indication: Malignant melanoma
     Dosage: 450 MG DAILY
     Route: 065
     Dates: start: 20240521, end: 20240605
  2. ENCORAFENIB [Suspect]
     Active Substance: ENCORAFENIB
     Dosage: 450 MG DAILY
     Route: 065
     Dates: start: 20240617
  3. BINIMETINIB [Suspect]
     Active Substance: BINIMETINIB
     Indication: Malignant melanoma
     Dosage: 90 MG DAILY
     Route: 065
     Dates: start: 20240521, end: 20240605
  4. BINIMETINIB [Suspect]
     Active Substance: BINIMETINIB
     Dosage: 90 MG DAILY
     Route: 065
     Dates: start: 20240617
  5. DIAZEPAM [Concomitant]
     Active Substance: DIAZEPAM
     Indication: Sleep disorder
     Dosage: 50 MG DAILY
     Route: 065
     Dates: start: 20230912, end: 20240619
  6. PREDNISONE [Concomitant]
     Active Substance: PREDNISONE
     Indication: Pancreatitis
     Dosage: 30 MG DAILY
     Route: 065
     Dates: start: 20240425, end: 20240605
  7. PREDNISONE [Concomitant]
     Active Substance: PREDNISONE
     Indication: Renal failure
  8. LOVENOX [Concomitant]
     Active Substance: ENOXAPARIN SODIUM
     Indication: Thrombosis prophylaxis
     Dosage: 4000 IU DAILY
     Route: 065
     Dates: start: 20240609, end: 20240704
  9. BACTRIM [Concomitant]
     Active Substance: SULFAMETHOXAZOLE\TRIMETHOPRIM
     Indication: Antifungal prophylaxis
     Dosage: 800 MG, 3 TIMES PER WEEK
     Route: 065
     Dates: start: 20240614
  10. POTASSIUM CHLORIDE [Concomitant]
     Active Substance: POTASSIUM CHLORIDE
     Indication: Hypokalaemia
     Dosage: 600 MG, BID (2/DAY)
     Route: 065
     Dates: start: 20240613, end: 20240615
  11. POTASSIUM CHLORIDE [Concomitant]
     Active Substance: POTASSIUM CHLORIDE
     Dosage: 1200 MG, BID (2/DAY)
     Route: 065
     Dates: start: 20240615, end: 20240619
  12. POTASSIUM CHLORIDE [Concomitant]
     Active Substance: POTASSIUM CHLORIDE
     Dosage: 600 MG, BID (2/DAY)
     Route: 065
     Dates: start: 20240620, end: 20240704
  13. HYDROCORTISONE [Concomitant]
     Active Substance: HYDROCORTISONE
     Indication: Adrenal insufficiency
     Dosage: 30 MG DAILY
     Route: 065
     Dates: start: 20240614, end: 20240704
  14. ACETAMINOPHEN [Concomitant]
     Active Substance: ACETAMINOPHEN
     Indication: Pain
     Dosage: 1000 MG AS NEEDED
     Route: 065
     Dates: start: 20220901

REACTIONS (12)
  - Renal failure [Not Recovered/Not Resolved]
  - Cholestasis [Not Recovered/Not Resolved]
  - Sepsis [Recovered/Resolved with Sequelae]
  - Herpes zoster [Recovered/Resolved with Sequelae]
  - Post herpetic neuralgia [Not Recovered/Not Resolved]
  - Malnutrition [Not Recovered/Not Resolved]
  - Nausea [Recovered/Resolved]
  - Anaemia [Recovered/Resolved with Sequelae]
  - Anaemia [Recovered/Resolved with Sequelae]
  - Anaemia [Recovered/Resolved]
  - Hypokalaemia [Recovered/Resolved]
  - Hyperkalaemia [Recovered/Resolved]

NARRATIVE: CASE EVENT DATE: 20240602
